FAERS Safety Report 12474568 (Version 1)
Quarter: 2016Q2

REPORT INFORMATION
  Report Type: Spontaneous
  Country: US (occurrence: None)
  Receive Date: 20160616
  Receipt Date: 20160616
  Transmission Date: 20160815
  Serious: Yes (Hospitalization, Other)
  Sender: FDA-Public Use
  Company Number: None

PATIENT
  Age: 46 Year
  Sex: Female
  Weight: 106.5 kg

DRUGS (17)
  1. TEMAZEPAM. [Concomitant]
     Active Substance: TEMAZEPAM
  2. PROPRANOLOL [Concomitant]
     Active Substance: PROPRANOLOL\PROPRANOLOL HYDROCHLORIDE
  3. PANTOPRAZOLE [Concomitant]
     Active Substance: PANTOPRAZOLE SODIUM
  4. TYLENOL PM [Concomitant]
     Active Substance: ACETAMINOPHEN\DIPHENHYDRAMINE
  5. VITAMIN B12 [Concomitant]
     Active Substance: CYANOCOBALAMIN
  6. SENOKOT [Concomitant]
     Active Substance: SENNOSIDES
  7. ONDANSETRON [Concomitant]
     Active Substance: ONDANSETRON
  8. NORTRIPTYLINE [Concomitant]
     Active Substance: NORTRIPTYLINE
  9. LACTULOSE. [Concomitant]
     Active Substance: LACTULOSE
  10. TOPAMAX [Concomitant]
     Active Substance: TOPIRAMATE
  11. NAMENDA [Concomitant]
     Active Substance: MEMANTINE HYDROCHLORIDE
  12. ANASTROZOLE 1MG ACCORD [Suspect]
     Active Substance: ANASTROZOLE
     Indication: BREAST CANCER
     Route: 048
     Dates: start: 20160215
  13. ULTRAM [Concomitant]
     Active Substance: TRAMADOL HYDROCHLORIDE
  14. VITAMIN D3 [Concomitant]
     Active Substance: CHOLECALCIFEROL
  15. LEVOTHYROXINE. [Concomitant]
     Active Substance: LEVOTHYROXINE
  16. GLUCOSAMINE [Concomitant]
     Active Substance: GLUCOSAMINE
  17. IRON [Concomitant]
     Active Substance: IRON

REACTIONS (8)
  - Diarrhoea [None]
  - Dehydration [None]
  - Constipation [None]
  - Hot flush [None]
  - Insomnia [None]
  - Asthenia [None]
  - Amnesia [None]
  - Fatigue [None]
